FAERS Safety Report 5280765-X (Version None)
Quarter: 2007Q1

REPORT INFORMATION
  Report Type: 
  Country: None (occurrence: None)
  Receive Date: 20070329
  Receipt Date: 20070320
  Transmission Date: 20070707
  Serious: Yes (Death, Other)
  Sender: FDA-Public Use
  Company Number: US-PURDUE-USA_2007_0026594

PATIENT
  Age: 20 Year
  Sex: Male
  Weight: 104 kg

DRUGS (7)
  1. OXYCODONE HYDROCHLORIDE [Suspect]
     Indication: DRUG USE FOR UNKNOWN INDICATION
     Dosage: UNK, UNK
     Route: 065
  2. PREDNISONE [Concomitant]
  3. GUAIFENESIN [Concomitant]
  4. AMOXICILLIN [Concomitant]
  5. ALLEGRA [Concomitant]
  6. COCAINE [Suspect]
     Indication: DRUG ABUSER
     Dosage: UNK, UNK
     Route: 065
  7. HYDROCODONE [Suspect]
     Indication: DRUG USE FOR UNKNOWN INDICATION
     Dosage: UNK, UNK
     Route: 065

REACTIONS (3)
  - MULTIPLE DRUG OVERDOSE ACCIDENTAL [None]
  - PULMONARY OEDEMA [None]
  - SUBSTANCE ABUSE [None]
